FAERS Safety Report 7425323-3 (Version None)
Quarter: 2011Q2

REPORT INFORMATION
  Report Type: 
  Country: None (occurrence: None)
  Receive Date: 20110420
  Receipt Date: 20110412
  Transmission Date: 20111010
  Serious: Yes (Other)
  Sender: FDA-Public Use
  Company Number: PHHY2011US05991

PATIENT
  Sex: Female

DRUGS (2)
  1. NEORAL [Suspect]
     Dosage: 50 MG, BID
     Route: 048
  2. NEORAL [Suspect]
     Indication: RENAL TRANSPLANT
     Dosage: 25 MG, BID
     Route: 048

REACTIONS (1)
  - CEREBROVASCULAR ACCIDENT [None]
